FAERS Safety Report 15883027 (Version 3)
Quarter: 2019Q1

REPORT INFORMATION
  Report Type: Spontaneous
  Country: JP (occurrence: JP)
  Receive Date: 20190129
  Receipt Date: 20190308
  Transmission Date: 20190417
  Serious: No
  Sender: FDA-Public Use
  Company Number: JP-SA-2018SA388635

PATIENT
  Age: 60 Year
  Sex: Male
  Weight: 68 kg

DRUGS (6)
  1. IRINOTECAN [Suspect]
     Active Substance: IRINOTECAN
     Indication: COLORECTAL CANCER METASTATIC
     Dosage: 280 MG, QOW
     Route: 041
     Dates: start: 20180913
  2. DECADRON [Concomitant]
     Active Substance: DEXAMETHASONE
     Indication: COLORECTAL CANCER METASTATIC
     Dosage: 9.9 MG, QOW
     Route: 041
     Dates: start: 20180913
  3. ZALTRAP [Suspect]
     Active Substance: ZIV-AFLIBERCEPT
     Indication: COLORECTAL CANCER METASTATIC
     Dosage: 275MG, QOW
     Route: 041
     Dates: start: 20180913
  4. FLUOROURACIL. [Suspect]
     Active Substance: FLUOROURACIL
     Indication: COLORECTAL CANCER METASTATIC
     Dosage: 750 MG, QOW
     Route: 042
     Dates: start: 20180913
  5. LEVOFOLINATE [CALCIUM LEVOFOLINATE] [Concomitant]
     Active Substance: LEVOLEUCOVORIN CALCIUM
     Indication: COLORECTAL CANCER METASTATIC
     Dosage: 375 MG, QOW
     Route: 041
     Dates: start: 20180913
  6. FLUOROURACIL. [Suspect]
     Active Substance: FLUOROURACIL
     Dosage: 4500 MG, QOW
     Route: 041
     Dates: start: 20180913

REACTIONS (4)
  - Neutrophil count decreased [Unknown]
  - Cough [Recovering/Resolving]
  - Dysphonia [Unknown]
  - White blood cell count decreased [Unknown]

NARRATIVE: CASE EVENT DATE: 20180927
